FAERS Safety Report 9676175 (Version 3)
Quarter: 2014Q3

REPORT INFORMATION
  Report Type: Report from Study
  Country: CA (occurrence: CA)
  Receive Date: 20131107
  Receipt Date: 20140924
  Transmission Date: 20150326
  Serious: Yes (Other)
  Sender: FDA-Public Use
  Company Number: CA-ABBVIE-12P-028-0898241-00

PATIENT
  Age: 50 Year
  Sex: Female
  Weight: 61 kg

DRUGS (3)
  1. HUMIRA [Suspect]
     Active Substance: ADALIMUMAB
     Indication: RHEUMATOID ARTHRITIS
     Route: 058
     Dates: start: 20040622
  2. CRESTOR [Concomitant]
     Active Substance: ROSUVASTATIN CALCIUM
     Indication: DYSLIPIDAEMIA
  3. SULFASALAZINE. [Concomitant]
     Active Substance: SULFASALAZINE
     Indication: RHEUMATOID ARTHRITIS
     Route: 048

REACTIONS (18)
  - Nodule [Recovered/Resolved]
  - Dyslipidaemia [Unknown]
  - Pain [Unknown]
  - Arthropathy [Unknown]
  - Joint arthroplasty [Unknown]
  - Post procedural complication [Unknown]
  - Nodule [Unknown]
  - Nail growth abnormal [Recovered/Resolved]
  - Device related infection [Unknown]
  - Arthropathy [Unknown]
  - Bone erosion [Unknown]
  - Ligament operation [Unknown]
  - Nodule [Recovered/Resolved]
  - Joint stiffness [Unknown]
  - Bone erosion [Unknown]
  - Rheumatoid arthritis [Unknown]
  - Rheumatoid arthritis [Unknown]
  - Tendon disorder [Unknown]

NARRATIVE: CASE EVENT DATE: 2009
